FAERS Safety Report 7871010 (Version 2)
Quarter: 2014Q1

REPORT INFORMATION
  Report Type: Spontaneous
  Country: US (occurrence: US)
  Receive Date: 20110325
  Receipt Date: 20140124
  Transmission Date: 20141002
  Serious: Yes (Other)
  Sender: FDA-Public Use
  Company Number: US-BAYER-2011-025784

PATIENT
  Age: 19 Year
  Sex: Female

DRUGS (8)
  1. YAZ [Suspect]
     Dosage: UNK
     Dates: start: 20061126, end: 20091104
  2. HYOSCYAMINE [Concomitant]
     Dosage: UNK
     Route: 048
     Dates: start: 20070702
  3. XIFAXAN [Concomitant]
     Dosage: 200 MG, UNK
     Route: 048
     Dates: start: 20070706
  4. AMOXICILLIN [Concomitant]
     Dosage: 500 MG, UNK
     Route: 048
     Dates: start: 20070718
  5. CIPROFLOXACIN [Concomitant]
     Dosage: 500 MG, UNK
     Route: 048
     Dates: start: 20070719
  6. CHOLESTYRAMINE [Concomitant]
     Dosage: 4 G, UNK
     Route: 048
     Dates: start: 20070724
  7. CEPHALEXIN [Concomitant]
     Dosage: 500 MG, UNK
     Route: 048
     Dates: start: 20070912
  8. DOXEPIN [Concomitant]
     Indication: MIGRAINE
     Dosage: 10 MG, UNK
     Route: 048
     Dates: start: 20070914

REACTIONS (4)
  - Cholecystectomy [None]
  - Cholecystitis chronic [None]
  - Injury [None]
  - Pain [None]
